FAERS Safety Report 6392427-6 (Version None)
Quarter: 2009Q4

REPORT INFORMATION
  Report Type: 
  Country: None (occurrence: None)
  Receive Date: 20091005
  Receipt Date: 20090921
  Transmission Date: 20100525
  Serious: Yes (Disabling)
  Sender: FDA-Public Use
  Company Number: 2009-00872

PATIENT
  Age: 58 Year
  Sex: Male

DRUGS (2)
  1. VELCADE [Suspect]
     Indication: MULTIPLE MYELOMA
     Dosage: 2.6  MG, INTRAVENOUS
     Route: 042
     Dates: start: 20081230, end: 20090217
  2. DEXAMETHASONE 0.5MG TAB [Concomitant]

REACTIONS (6)
  - FACE OEDEMA [None]
  - FAT NECROSIS [None]
  - NEURALGIA [None]
  - NEUROPATHY PERIPHERAL [None]
  - OEDEMA PERIPHERAL [None]
  - SKIN NODULE [None]
